FAERS Safety Report 9324664 (Version 1)
Quarter: 2013Q2

REPORT INFORMATION
  Report Type: Spontaneous
  Country: VE (occurrence: VE)
  Receive Date: 20130603
  Receipt Date: 20130603
  Transmission Date: 20140414
  Serious: Yes (Hospitalization)
  Sender: FDA-Public Use
  Company Number: VE-GLAXOSMITHKLINE-A1025429A

PATIENT
  Age: 15 Year
  Sex: Female

DRUGS (1)
  1. LAMICTAL [Suspect]
     Indication: ELECTROENCEPHALOGRAM ABNORMAL
     Dosage: 100MG PER DAY
     Route: 048
     Dates: start: 20110818, end: 20110921

REACTIONS (6)
  - Rash [Unknown]
  - Oropharyngeal pain [Unknown]
  - Dysuria [Unknown]
  - Pyrexia [Unknown]
  - Oral disorder [Unknown]
  - Vaginal lesion [Unknown]
